FAERS Safety Report 24260098 (Version 1)
Quarter: 2024Q3

REPORT INFORMATION
  Report Type: Spontaneous
  Country: GB (occurrence: GB)
  Receive Date: 20240828
  Receipt Date: 20240828
  Transmission Date: 20241016
  Serious: Yes (Other)
  Sender: TEVA
  Company Number: GB-MHRA-EMIS-5916-5f049a0d-c8fb-4a21-88c9-e037e04eb013

PATIENT
  Age: 85 Year
  Sex: Female
  Weight: 49 kg

DRUGS (6)
  1. SOLIFENACIN [Suspect]
     Active Substance: SOLIFENACIN
     Route: 065
     Dates: start: 20240807
  2. Cetraben [Concomitant]
     Dosage: USE 3-4 TIMES A DAY AND AS A SOAP SUBSTITUTE 500 G, CETRABEN CREAM (THORNTON + ROSS LTD)
     Route: 065
     Dates: start: 20240712
  3. NITROFURANTOIN [Concomitant]
     Active Substance: NITROFURANTOIN
     Dates: start: 20240726
  4. BUTYLSCOPOLAMINE BROMIDE [Concomitant]
     Active Substance: BUTYLSCOPOLAMINE BROMIDE
     Dosage: BUSCOPAN 10MG TABLETS (SANOFI CONSUMER HEALTHCARE)
     Route: 065
     Dates: start: 20240617, end: 20240716
  5. SOLARAZE [Concomitant]
     Active Substance: DICLOFENAC SODIUM
     Indication: Actinic keratosis
     Dosage: TO BE USED TWICE A DAY FOR 60-90 DAYS, 50G
     Dates: start: 20240726
  6. HYDROCORTISONE [Concomitant]
     Active Substance: HYDROCORTISONE\HYDROCORTISONE ACETATE
     Dosage: APPLY THINLY TWICE A DAY AS DIRECTED 15 G
     Dates: start: 20240617, end: 20240716

REACTIONS (4)
  - Stomatitis [Recovered/Resolved]
  - Palatal swelling [Recovered/Resolved]
  - Dry mouth [Recovered/Resolved]
  - Paraesthesia oral [Recovered/Resolved]

NARRATIVE: CASE EVENT DATE: 20240807
